FAERS Safety Report 5085329-9 (Version None)
Quarter: 2006Q3

REPORT INFORMATION
  Report Type: 
  Country: None (occurrence: None)
  Receive Date: 20060816
  Receipt Date: 20060802
  Transmission Date: 20061208
  Serious: Yes (Life-Threatening)
  Sender: FDA-Public Use
  Company Number: 2006BH012336

PATIENT
  Age: 35 Year
  Sex: Male

DRUGS (9)
  1. PHENYTOIN [Suspect]
     Indication: DRUG USE FOR UNKNOWN INDICATION
     Dosage: SEE IMAGE
  2. CEFTRIAXONE [Concomitant]
  3. H2 BLOCKERS [Concomitant]
  4. MANNITOL [Concomitant]
  5. FLUIDS [Concomitant]
  6. PIPERACILLIN [Concomitant]
  7. TAZOBACTAM [Concomitant]
  8. MEROPENEM [Concomitant]
  9. LINEZOLID [Concomitant]

REACTIONS (17)
  - ALANINE AMINOTRANSFERASE INCREASED [None]
  - ASPARTATE AMINOTRANSFERASE INCREASED [None]
  - BLISTER [None]
  - BLOOD BILIRUBIN INCREASED [None]
  - BLOOD CREATININE INCREASED [None]
  - BLOOD UREA INCREASED [None]
  - DERMATITIS BULLOUS [None]
  - DRUG HYPERSENSITIVITY [None]
  - EOSINOPHILIA [None]
  - GENERAL PHYSICAL HEALTH DETERIORATION [None]
  - HYDROCEPHALUS [None]
  - LIVER FUNCTION TEST ABNORMAL [None]
  - MULTI-ORGAN FAILURE [None]
  - PYREXIA [None]
  - RENAL IMPAIRMENT [None]
  - SEPSIS [None]
  - WHITE BLOOD CELL COUNT INCREASED [None]
